FAERS Safety Report 7217376-2 (Version None)
Quarter: 2010Q4

REPORT INFORMATION
  Report Type: 
  Country: None (occurrence: None)
  Receive Date: 20101230
  Receipt Date: 20101102
  Transmission Date: 20110411
  Serious: No
  Sender: FDA-Public Use
  Company Number: 2010-00979

PATIENT
  Age: 74 Year
  Sex: Female
  Weight: 68.0396 kg

DRUGS (9)
  1. ZICAM COLD REMEDY RAPIDMELTS WITH VITAMIN C [Suspect]
     Indication: NASOPHARYNGITIS
     Dosage: Q FEW HOURS X 2 DAYS
     Dates: start: 20101028, end: 20101029
  2. LITHIUM [Concomitant]
  3. RESPERIDOL [Concomitant]
  4. PAXIL [Concomitant]
  5. LEVOTHYROXINE [Concomitant]
  6. VITAMIN D [Concomitant]
  7. FOLIC ACID [Concomitant]
  8. SYMVASTATIN [Concomitant]
  9. FEMORA [Concomitant]

REACTIONS (2)
  - AGEUSIA [None]
  - DRUG INEFFECTIVE [None]
